FAERS Safety Report 16736009 (Version 4)
Quarter: 2020Q2

REPORT INFORMATION
  Report Type: Spontaneous
  Country: US (occurrence: US)
  Receive Date: 20190823
  Receipt Date: 20200616
  Transmission Date: 20200713
  Serious: No
  Sender: FDA-Public Use
  Company Number: US-PFIZER INC-2019363108

PATIENT
  Age: 61 Year
  Sex: Female

DRUGS (1)
  1. RELPAX [Suspect]
     Active Substance: ELETRIPTAN HYDROBROMIDE
     Indication: HEADACHE
     Dosage: 40 MG, AS NEEDED [1 TABLET BY MOUTH IF NEEDED]
     Route: 048

REACTIONS (4)
  - Malaise [Unknown]
  - Recalled product administered [Unknown]
  - Off label use [Unknown]
  - Product use in unapproved indication [Unknown]
